FAERS Safety Report 5070961-9 (Version None)
Quarter: 2006Q3

REPORT INFORMATION
  Report Type: 
  Country: None (occurrence: None)
  Receive Date: 20060804
  Receipt Date: 20060801
  Transmission Date: 20061208
  Serious: Yes (Life-Threatening, Hospitalization)
  Sender: FDA-Public Use
  Company Number: ES-BAYER-200613301GDS

PATIENT
  Age: 78 Year
  Sex: Male

DRUGS (4)
  1. ADIRO [Suspect]
     Indication: ESSENTIAL HYPERTENSION
     Route: 048
     Dates: end: 20050109
  2. CESPLON PLUS  (HYDROCHLOROTHIAZIDE/CAPTOPRIL) [Suspect]
     Indication: ESSENTIAL HYPERTENSION
     Route: 048
     Dates: end: 20060109
  3. MOTILIUM [Suspect]
     Indication: DYSPEPSIA
     Route: 048
     Dates: end: 20060109
  4. PLANTABEN [Suspect]
     Indication: DYSPEPSIA
     Route: 048
     Dates: end: 20060109

REACTIONS (3)
  - ANAEMIA [None]
  - DIARRHOEA HAEMORRHAGIC [None]
  - VOMITING [None]
